FAERS Safety Report 9158136 (Version 1)
Quarter: 2013Q1

REPORT INFORMATION
  Report Type: Spontaneous
  Country: FR (occurrence: None)
  Receive Date: 20130211
  Receipt Date: 20130211
  Transmission Date: 20140127
  Serious: Yes (Hospitalization)
  Sender: FDA-Public Use
  Company Number: FK201300396

PATIENT
  Age: 15 Year
  Sex: Male

DRUGS (4)
  1. METHOTREXATE [Suspect]
     Indication: ACUTE LYMPHOCYTIC LEUKAEMIA
     Dosage: 5, G/M2/24 HR
  2. LEVETIRACETAM [Suspect]
     Indication: EPILEPSY
     Dosage: 15 MG/KG, MG/KG DAY
  3. ONDANSETRON (ONDANSETRON) [Concomitant]
  4. METOPIMAZINE (METOPIMAZINE) [Concomitant]

REACTIONS (7)
  - Drug interaction [None]
  - Convulsion [None]
  - Vomiting [None]
  - Renal failure [None]
  - Hypertension [None]
  - Drug level increased [None]
  - Toxicity to various agents [None]
